FAERS Safety Report 16485594 (Version 1)
Quarter: 2019Q2

REPORT INFORMATION
  Report Type: Spontaneous
  Country: GB (occurrence: GB)
  Receive Date: 20190627
  Receipt Date: 20190627
  Transmission Date: 20190711
  Serious: Yes (Other)
  Sender: FDA-Public Use
  Company Number: GB-ACCORD-135488

PATIENT
  Age: 70 Year
  Sex: Female
  Weight: 93 kg

DRUGS (7)
  1. OXYBUTYNIN/OXYBUTYNIN HYDROCHLORIDE [Suspect]
     Active Substance: OXYBUTYNIN
     Indication: PRODUCT USED FOR UNKNOWN INDICATION
     Dates: start: 20190524
  2. BENDROFLUMETHIAZIDE [Concomitant]
     Active Substance: BENDROFLUMETHIAZIDE
     Dosage: EACH MORNING.
     Dates: start: 20171229
  3. CANDESARTAN. [Concomitant]
     Active Substance: CANDESARTAN
     Dates: start: 20171229
  4. MIRABEGRON [Concomitant]
     Active Substance: MIRABEGRON
     Dates: start: 20190124
  5. EPILIM [Concomitant]
     Active Substance: VALPROATE SODIUM
     Dates: start: 20180424
  6. DOXAZOSIN [Concomitant]
     Active Substance: DOXAZOSIN\DOXAZOSIN MESYLATE
     Dates: start: 20171229
  7. HYOSCINE [Concomitant]
     Active Substance: SCOPOLAMINE
     Dosage: MAX 3 DAILY.
     Dates: start: 20180313

REACTIONS (1)
  - Sphincter of Oddi dysfunction [Recovered/Resolved]

NARRATIVE: CASE EVENT DATE: 20190524
